FAERS Safety Report 17148321 (Version 1)
Quarter: 2019Q4

REPORT INFORMATION
  Report Type: Report from Study
  Country: US (occurrence: US)
  Receive Date: 20191212
  Receipt Date: 20191212
  Transmission Date: 20200122
  Serious: No
  Sender: FDA-Public Use
  Company Number: NVSC2019US017214

PATIENT
  Sex: Female

DRUGS (1)
  1. PIQRAY [Suspect]
     Active Substance: ALPELISIB
     Indication: PRODUCT USED FOR UNKNOWN INDICATION
     Dosage: UNK
     Route: 048

REACTIONS (9)
  - Breast mass [Unknown]
  - Weight decreased [Unknown]
  - Eating disorder [Unknown]
  - Gingival discomfort [Unknown]
  - Decreased appetite [Unknown]
  - Gingival pain [Unknown]
  - Pain [Unknown]
  - Localised infection [Unknown]
  - Pain in extremity [Unknown]
